FAERS Safety Report 10454136 (Version 1)
Quarter: 2014Q3

REPORT INFORMATION
  Report Type: Spontaneous
  Country: US (occurrence: US)
  Receive Date: 20140915
  Receipt Date: 20140915
  Transmission Date: 20150326
  Serious: No
  Sender: FDA-Public Use
  Company Number: US-BRISTOL-MYERS SQUIBB COMPANY-21086673

PATIENT
  Age: 77 Year
  Sex: Female
  Weight: 72.56 kg

DRUGS (6)
  1. OMEPRAZOLE. [Concomitant]
     Active Substance: OMEPRAZOLE
  2. ELIQUIS [Suspect]
     Active Substance: APIXABAN
     Dates: start: 201401
  3. OXYCODONE [Concomitant]
     Active Substance: OXYCODONE
  4. ATENOLOL. [Concomitant]
     Active Substance: ATENOLOL
  5. SYNTHROID [Concomitant]
     Active Substance: LEVOTHYROXINE SODIUM
  6. LISINOPRIL. [Concomitant]
     Active Substance: LISINOPRIL

REACTIONS (1)
  - Back pain [Unknown]
